FAERS Safety Report 9803427 (Version 1)
Quarter: 2014Q1

REPORT INFORMATION
  Report Type: Spontaneous
  Country: US (occurrence: None)
  Receive Date: 20140107
  Receipt Date: 20140107
  Transmission Date: 20141002
  Serious: Yes (Disabling)
  Sender: FDA-Public Use
  Company Number: None

PATIENT
  Age: 58 Year
  Sex: Male
  Weight: 69.2 kg

DRUGS (1)
  1. HUMAN GROWTH HORMONE (1-43-NH2) [Suspect]

REACTIONS (3)
  - Cholestasis [None]
  - Renal injury [None]
  - Dialysis [None]
